FAERS Safety Report 4342593-9 (Version None)
Quarter: 2004Q2

REPORT INFORMATION
  Report Type: 
  Country: None (occurrence: None)
  Receive Date: 20040413
  Receipt Date: 20040403
  Transmission Date: 20050107
  Serious: Yes (Other)
  Sender: FDA-Public Use
  Company Number: 2004207727QA

PATIENT
  Age: 40 Year
  Sex: Female

DRUGS (2)
  1. CLEOCIN [Suspect]
     Indication: ACNE
     Dosage: 150 MG, TID, ORAL
     Route: 048
     Dates: start: 20030322, end: 20040323
  2. CLINDAMYCIN [Suspect]
     Dosage: 1 %, BID, TOPICAL
     Route: 061
     Dates: start: 20030322, end: 20040323

REACTIONS (3)
  - ABDOMINAL PAIN [None]
  - NAUSEA [None]
  - URTICARIA [None]
